FAERS Safety Report 6053015-4 (Version None)
Quarter: 2009Q1

REPORT INFORMATION
  Report Type: 
  Country: None (occurrence: None)
  Receive Date: 20090127
  Receipt Date: 20090115
  Transmission Date: 20090719
  Serious: Yes (Other)
  Sender: FDA-Public Use
  Company Number: CH-PFIZER INC-2008080662

PATIENT

DRUGS (6)
  1. SUTENT [Suspect]
     Indication: BREAST CANCER METASTATIC
     Dosage: 25 MG, 1X/DAY
     Dates: start: 20080612, end: 20080619
  2. SUTENT [Suspect]
     Dosage: 50 MG, 1X/DAY
     Dates: start: 20080620, end: 20080823
  3. ALL OTHER THERAPEUTIC PRODUCTS [Concomitant]
  4. OMEPRAZOLE [Concomitant]
     Dosage: UNK
     Route: 048
     Dates: start: 20080507
  5. LEXOTANIL [Concomitant]
  6. PONSTAN [Concomitant]

REACTIONS (3)
  - CATARACT [None]
  - EYE DISORDER [None]
  - VISUAL ACUITY REDUCED [None]
